FAERS Safety Report 4837953-3 (Version None)
Quarter: 2005Q4

REPORT INFORMATION
  Report Type: 
  Country: None (occurrence: None)
  Receive Date: 20051128
  Receipt Date: 20051115
  Transmission Date: 20060501
  Serious: Yes (Hospitalization)
  Sender: FDA-Public Use
  Company Number: JP-ROCHE-425224

PATIENT
  Age: 19 Year
  Sex: Female

DRUGS (6)
  1. TAMIFLU [Suspect]
     Indication: INFLUENZA
     Route: 048
     Dates: start: 20050224, end: 20050226
  2. LOXONIN [Concomitant]
     Route: 048
     Dates: start: 20050224
  3. UNCLASSIFIED DRUG [Concomitant]
     Dosage: DRUG NAME REPORTED AS MITINO
     Route: 055
     Dates: start: 20050224, end: 20050226
  4. LEFTOSE [Concomitant]
     Route: 048
     Dates: start: 20050224
  5. HY-STAMIN [Concomitant]
     Dosage: ROUTE REPORTED AS INJECTABLE (NOT OTHERWISE SPECIFIED)
     Route: 050
     Dates: start: 20050224, end: 20050226
  6. IDOMETHINE [Concomitant]
     Route: 054
     Dates: start: 20050224, end: 20050224

REACTIONS (3)
  - DEPRESSED LEVEL OF CONSCIOUSNESS [None]
  - NASAL DISORDER [None]
  - PHARYNGOLARYNGEAL PAIN [None]
